FAERS Safety Report 23545107 (Version 4)
Quarter: 2024Q3

REPORT INFORMATION
  Report Type: Spontaneous
  Country: US (occurrence: US)
  Receive Date: 20240220
  Receipt Date: 20240820
  Transmission Date: 20241016
  Serious: No
  Sender: PFIZER
  Company Number: US-PFIZER INC-PV202300203466

PATIENT
  Age: 71 Year
  Sex: Male

DRUGS (1)
  1. BRAFTOVI [Suspect]
     Active Substance: ENCORAFENIB
     Dosage: 300 MG (4 CAPSULES OF 75 MG), BY MOUTH DAILY
     Route: 048

REACTIONS (1)
  - Bradykinesia [Unknown]
